FAERS Safety Report 16094240 (Version 1)
Quarter: 2019Q1

REPORT INFORMATION
  Report Type: Spontaneous
  Country: US (occurrence: US)
  Receive Date: 20190320
  Receipt Date: 20190320
  Transmission Date: 20190418
  Serious: No
  Sender: FDA-Public Use
  Company Number: US-DRREDDYS-USA/USA/19/0108764

PATIENT
  Age: 33 Year
  Sex: Male
  Weight: 65.9 kg

DRUGS (2)
  1. VERAPAMIL [Concomitant]
     Active Substance: VERAPAMIL HYDROCHLORIDE
     Indication: PRODUCT USED FOR UNKNOWN INDICATION
  2. SUMATRIPTAN INJECTION USP, 6 MG/0.5 ML [Suspect]
     Active Substance: SUMATRIPTAN
     Indication: CLUSTER HEADACHE
     Dosage: SUMATRIPTAN SUCCINATE INJECTION, USP AUTOINJECTION SYSTEM 6MG/0.5ML-DRL 2CT
     Route: 058

REACTIONS (2)
  - Product dose omission [Not Recovered/Not Resolved]
  - Product quality issue [Unknown]

NARRATIVE: CASE EVENT DATE: 20190318
